FAERS Safety Report 6420535-X (Version None)
Quarter: 2009Q4

REPORT INFORMATION
  Report Type: 
  Country: None (occurrence: None)
  Receive Date: 20091027
  Receipt Date: 20091013
  Transmission Date: 20100525
  Serious: Yes (Death, Life-Threatening)
  Sender: FDA-Public Use
  Company Number: 1000007531

PATIENT
  Age: 72 Year
  Sex: Male

DRUGS (7)
  1. ESCITALOPRAM OXALATE [Suspect]
     Indication: DEPRESSION
     Dosage: (60 MG,ONCE), ORAL;  10 MG (10 MG,1 IN 1 D), ORAL
     Route: 048
     Dates: start: 20090626, end: 20090706
  2. ESCITALOPRAM OXALATE [Suspect]
     Indication: DEPRESSION
     Dosage: (60 MG,ONCE), ORAL;  10 MG (10 MG,1 IN 1 D), ORAL
     Route: 048
     Dates: start: 20090706, end: 20090706
  3. PLAVIX [Concomitant]
  4. CORDARONE [Concomitant]
  5. TRIATEC [Concomitant]
  6. OMNIC [Concomitant]
  7. DORMICUM [Concomitant]

REACTIONS (10)
  - ABNORMAL BEHAVIOUR [None]
  - CEREBRAL ARTERY EMBOLISM [None]
  - COMPLETED SUICIDE [None]
  - CONVULSION [None]
  - DELIRIUM [None]
  - HAEMATEMESIS [None]
  - HALLUCINATION, VISUAL [None]
  - INTENTIONAL OVERDOSE [None]
  - PSYCHOMOTOR HYPERACTIVITY [None]
  - PULMONARY EMBOLISM [None]
